FAERS Safety Report 12354439 (Version 1)
Quarter: 2016Q2

REPORT INFORMATION
  Report Type: Spontaneous
  Country: US (occurrence: US)
  Receive Date: 20160511
  Receipt Date: 20160511
  Transmission Date: 20160815
  Serious: No
  Sender: FDA-Public Use
  Company Number: US-BAYER-2016-088384

PATIENT
  Age: 16 Year
  Sex: Male

DRUGS (4)
  1. CIPROFLOXACIN. [Suspect]
     Active Substance: CIPROFLOXACIN
     Indication: TYPHOID FEVER
  2. CEFTRIAXONE. [Concomitant]
     Active Substance: CEFTRIAXONE
     Indication: SALMONELLA TEST POSITIVE
  3. DEXAMETHASON [Concomitant]
     Active Substance: DEXAMETHASONE
     Indication: ENTERITIS
  4. DEXAMETHASON [Concomitant]
     Active Substance: DEXAMETHASONE
     Indication: ASCITES

REACTIONS (1)
  - Off label use [None]
